FAERS Safety Report 15282316 (Version 2)
Quarter: 2018Q3

REPORT INFORMATION
  Report Type: Spontaneous
  Country: CN (occurrence: CN)
  Receive Date: 20180816
  Receipt Date: 20180903
  Transmission Date: 20181010
  Serious: Yes (Other)
  Sender: FDA-Public Use
  Company Number: CN-009507513-1806CHN002839

PATIENT

DRUGS (2)
  1. PEGINTRON [Suspect]
     Active Substance: PEGINTERFERON ALFA-2B
     Dosage: REDUCED BY 20 MICROGRAM
  2. PEGINTRON [Suspect]
     Active Substance: PEGINTERFERON ALFA-2B
     Indication: HEPATITIS B DNA ASSAY POSITIVE
     Dosage: 1?1.5 MICROGRAM/KG X ACTUAL BODY MASS

REACTIONS (4)
  - Thyroid function test abnormal [Recovering/Resolving]
  - Thyroid function test abnormal [Unknown]
  - Thyroid function test abnormal [Recovered/Resolved]
  - Hyperthyroidism [Recovered/Resolved]
